FAERS Safety Report 6161645-4 (Version None)
Quarter: 2009Q2

REPORT INFORMATION
  Report Type: 
  Country: None (occurrence: None)
  Receive Date: 20090417
  Receipt Date: 20090406
  Transmission Date: 20091009
  Serious: Yes (Hospitalization)
  Sender: FDA-Public Use
  Company Number: 2009SP000919

PATIENT
  Age: 58 Year
  Sex: Female

DRUGS (8)
  1. XOPENEX [Suspect]
     Indication: CHRONIC OBSTRUCTIVE PULMONARY DISEASE
     Dosage: 1.25 MG/3ML;PRN;INHALATION
     Route: 055
  2. LANOXIN [Concomitant]
  3. ATROVENT [Concomitant]
  4. KLONOPIN [Concomitant]
  5. LASIX [Concomitant]
  6. LORTAB [Concomitant]
  7. COLACE [Concomitant]
  8. ALBUTEROL [Concomitant]

REACTIONS (3)
  - CHRONIC OBSTRUCTIVE PULMONARY DISEASE [None]
  - DRUG EFFECT DECREASED [None]
  - FEELING JITTERY [None]
